FAERS Safety Report 25372753 (Version 2)
Quarter: 2025Q2

REPORT INFORMATION
  Report Type: Report from Study
  Country: LT (occurrence: LT)
  Receive Date: 20250529
  Receipt Date: 20250603
  Transmission Date: 20250716
  Serious: Yes (Death, Hospitalization, Other)
  Sender: CELLTRION
  Company Number: LT-ROCHE-3229122

PATIENT

DRUGS (5)
  1. BEVACIZUMAB [Suspect]
     Active Substance: BEVACIZUMAB
     Indication: Non-small cell lung cancer metastatic
     Route: 065
     Dates: start: 20220611
  2. ATEZOLIZUMAB [Suspect]
     Active Substance: ATEZOLIZUMAB
     Indication: Non-small cell lung cancer metastatic
     Route: 041
     Dates: start: 20210611
  3. CARBOPLATIN [Suspect]
     Active Substance: CARBOPLATIN
     Indication: Non-small cell lung cancer metastatic
     Route: 065
     Dates: start: 20210611
  4. PACLITAXEL [Suspect]
     Active Substance: PACLITAXEL
     Indication: Non-small cell lung cancer metastatic
     Route: 065
     Dates: start: 20210611
  5. DEXAMETHASONE [Concomitant]
     Active Substance: DEXAMETHASONE
     Dates: start: 20210511

REACTIONS (3)
  - Death [Fatal]
  - Colitis [Recovered/Resolved]
  - Intentional product use issue [Unknown]

NARRATIVE: CASE EVENT DATE: 20220901
